FAERS Safety Report 20197470 (Version 1)
Quarter: 2021Q4

REPORT INFORMATION
  Report Type: Spontaneous
  Country: US (occurrence: US)
  Receive Date: 20211217
  Receipt Date: 20211217
  Transmission Date: 20220303
  Serious: No
  Sender: FDA-Public Use
  Company Number: US-PACIRA-2021000171

PATIENT
  Sex: Male

DRUGS (2)
  1. EXPAREL [Suspect]
     Active Substance: BUPIVACAINE
     Dosage: 20 ML WITH 40 OF QUARTER PERCENT BUPIVACAINE
     Route: 065
     Dates: start: 20210217, end: 20210217
  2. BUPIVACAINE [Suspect]
     Active Substance: BUPIVACAINE
     Dosage: 40 ML WITH 20 ML EXPAREL
     Route: 065
     Dates: start: 20210217, end: 20210217

REACTIONS (2)
  - Drug ineffective [Unknown]
  - Pain [Not Recovered/Not Resolved]
